FAERS Safety Report 16843332 (Version 4)
Quarter: 2021Q1

REPORT INFORMATION
  Report Type: Report from Study
  Country: FR (occurrence: FR)
  Receive Date: 20190924
  Receipt Date: 20210226
  Transmission Date: 20210419
  Serious: Yes (Other)
  Sender: FDA-Public Use
  Company Number: PHHY2019FR094210

PATIENT
  Age: 69 Year
  Sex: Female
  Weight: 70.9 kg

DRUGS (1)
  1. ADOPORT [Suspect]
     Active Substance: TACROLIMUS
     Indication: RENAL TRANSPLANT
     Dosage: 9 MG, UNK
     Route: 048
     Dates: start: 20190123, end: 20190731

REACTIONS (6)
  - Rash erythematous [Recovered/Resolved]
  - Irritability [Unknown]
  - Rash pruritic [Recovered/Resolved]
  - Hypocalcaemia [Recovered/Resolved]
  - Alopecia [Unknown]
  - Tremor [Unknown]

NARRATIVE: CASE EVENT DATE: 20190301
